FAERS Safety Report 10370196 (Version 3)
Quarter: 2014Q3

REPORT INFORMATION
  Report Type: Report from Study
  Country: TH (occurrence: TH)
  Receive Date: 20140808
  Receipt Date: 20140903
  Transmission Date: 20150326
  Serious: Yes (Death, Hospitalization, Other)
  Sender: FDA-Public Use
  Company Number: PHHY2014TH097205

PATIENT
  Age: 63 Year
  Sex: Female

DRUGS (4)
  1. GLIVEC [Suspect]
     Active Substance: IMATINIB MESYLATE
     Dosage: 600 MG, PER DAY
     Dates: start: 20140521
  2. GLIVEC [Suspect]
     Active Substance: IMATINIB MESYLATE
     Indication: DERMATOFIBROSARCOMA PROTUBERANS
     Dosage: 400 MG, PER DAY
     Dates: start: 20140507
  3. GLIVEC [Suspect]
     Active Substance: IMATINIB MESYLATE
     Dosage: 400 MG, PER DAY
     Dates: start: 20140625
  4. GLIVEC [Suspect]
     Active Substance: IMATINIB MESYLATE
     Dosage: 800 MG, PER DAY

REACTIONS (10)
  - Oedema peripheral [Unknown]
  - Pulmonary mass [Unknown]
  - Fatigue [Unknown]
  - Nausea [Unknown]
  - Anaemia [Unknown]
  - Oedema [Unknown]
  - Sepsis [Fatal]
  - Decreased appetite [Unknown]
  - Urinary tract infection [Fatal]
  - Drug intolerance [Unknown]

NARRATIVE: CASE EVENT DATE: 20140507
